FAERS Safety Report 8584608-8 (Version None)
Quarter: 2012Q3

REPORT INFORMATION
  Report Type: 
  Country: None (occurrence: None)
  Receive Date: 20120810
  Receipt Date: 20120731
  Transmission Date: 20120928
  Serious: Yes (Hospitalization)
  Sender: FDA-Public Use
  Company Number: US-BAYER-2010-002472

PATIENT
  Age: 35 Year
  Sex: Female
  Weight: 110 kg

DRUGS (4)
  1. YASMIN [Suspect]
     Indication: PREMENSTRUAL SYNDROME
     Dosage: UNK
     Route: 048
     Dates: start: 20030101, end: 20041201
  2. SYNTHROID [Concomitant]
  3. YAZ [Suspect]
     Indication: PREMENSTRUAL SYNDROME
     Dosage: UNK
     Dates: start: 20030101, end: 20041201
  4. LEVOTHYROXINE SODIUM [Concomitant]
     Dosage: 150 ?G, UNK
     Route: 048
     Dates: start: 20041004

REACTIONS (1)
  - PULMONARY EMBOLISM [None]
